FAERS Safety Report 21823535 (Version 2)
Quarter: 2023Q1

REPORT INFORMATION
  Report Type: Report from Study
  Country: US (occurrence: US)
  Receive Date: 20230105
  Receipt Date: 20230203
  Transmission Date: 20230417
  Serious: No
  Sender: FDA-Public Use
  Company Number: US-Ipsen Biopharmaceuticals, Inc.-2022-34992

PATIENT
  Age: 69 Year
  Sex: Female

DRUGS (17)
  1. SOMATULINE DEPOT [Suspect]
     Active Substance: LANREOTIDE ACETATE
     Indication: Neuroendocrine carcinoma metastatic
     Route: 065
     Dates: start: 20221014
  2. DICYCLOMINE [Concomitant]
     Active Substance: DICYCLOMINE HYDROCHLORIDE
  3. FOLIC ACID [Concomitant]
     Active Substance: FOLIC ACID
  4. LEVOTHYROXINE [Concomitant]
     Active Substance: LEVOTHYROXINE
  5. LOPERAMIDE [Concomitant]
     Active Substance: LOPERAMIDE
  6. MAGNESIUM OXIDE [Concomitant]
     Active Substance: MAGNESIUM OXIDE
     Dosage: 400MG BID
  7. OMEPRAZOLE [Concomitant]
     Active Substance: OMEPRAZOLE
     Dosage: 20MG QD
  8. ONDANSETRON [Concomitant]
     Active Substance: ONDANSETRON
  9. POTASSIUM CHLORIDE [Concomitant]
     Active Substance: POTASSIUM CHLORIDE
  10. VALSARTAN [Concomitant]
     Active Substance: VALSARTAN
     Dosage: 160MG QD
  11. COLESTIPOL [Concomitant]
     Active Substance: COLESTIPOL
  12. BREO ELLIPTA [Concomitant]
     Active Substance: FLUTICASONE FUROATE\VILANTEROL TRIFENATATE
  13. XARELTO [Concomitant]
     Active Substance: RIVAROXABAN
  14. METOPROLOL TARTRATE [Concomitant]
     Active Substance: METOPROLOL TARTRATE
     Dosage: 12.5 BID
  15. ELIQUIS [Concomitant]
     Active Substance: APIXABAN
  16. ASPIRIN [Concomitant]
     Active Substance: ASPIRIN
  17. PREDNISONE [Concomitant]
     Active Substance: PREDNISONE

REACTIONS (10)
  - Blood magnesium decreased [Not Recovered/Not Resolved]
  - Pruritus [Not Recovered/Not Resolved]
  - Diarrhoea [Recovering/Resolving]
  - Dysgeusia [Not Recovered/Not Resolved]
  - Abdominal pain [Not Recovered/Not Resolved]
  - Flatulence [Not Recovered/Not Resolved]
  - Blood potassium decreased [Not Recovered/Not Resolved]
  - Wheezing [Not Recovered/Not Resolved]
  - Hospitalisation [Unknown]
  - Thrombosis [Not Recovered/Not Resolved]
